FAERS Safety Report 20697626 (Version 1)
Quarter: 2022Q2

REPORT INFORMATION
  Report Type: Spontaneous
  Country: US (occurrence: US)
  Receive Date: 20220411
  Receipt Date: 20220411
  Transmission Date: 20220721
  Serious: No
  Sender: FDA-Public Use
  Company Number: US-BEH-2022144004

PATIENT
  Sex: Female

DRUGS (3)
  1. HIZENTRA [Suspect]
     Active Substance: HUMAN IMMUNOGLOBULIN G
     Indication: Multiple sclerosis
     Dosage: 50 MILLILITER, QW
     Route: 058
     Dates: start: 202004
  2. HIZENTRA [Suspect]
     Active Substance: HUMAN IMMUNOGLOBULIN G
     Indication: Chronic inflammatory demyelinating polyradiculoneuropathy
  3. OCRELIZUMAB [Suspect]
     Active Substance: OCRELIZUMAB

REACTIONS (3)
  - Weight decreased [Unknown]
  - No adverse event [Unknown]
  - Off label use [Unknown]
